FAERS Safety Report 6795894-9 (Version None)
Quarter: 2010Q2

REPORT INFORMATION
  Report Type: 
  Country: None (occurrence: None)
  Receive Date: 20100625
  Receipt Date: 20100616
  Transmission Date: 20101027
  Serious: Yes (Hospitalization)
  Sender: FDA-Public Use
  Company Number: A0866962A

PATIENT
  Sex: Male

DRUGS (2)
  1. FONDAPARINUX SODIUM [Suspect]
     Indication: DRUG USE FOR UNKNOWN INDICATION
     Dosage: 10MG PER DAY
     Route: 065
     Dates: start: 20091101
  2. ASPIRIN [Concomitant]
     Dosage: 325MG PER DAY

REACTIONS (6)
  - COMPARTMENT SYNDROME [None]
  - DEEP VEIN THROMBOSIS [None]
  - DRUG INEFFECTIVE [None]
  - FASCIOTOMY [None]
  - HAEMORRHAGE [None]
  - PAIN IN EXTREMITY [None]
